FAERS Safety Report 14175128 (Version 1)
Quarter: 2017Q4

REPORT INFORMATION
  Report Type: Spontaneous
  Country: JP (occurrence: JP)
  Receive Date: 20171109
  Receipt Date: 20171109
  Transmission Date: 20180321
  Serious: Yes (Death, Hospitalization)
  Sender: FDA-Public Use
  Company Number: JP-NOVOPROD-571308

PATIENT
  Age: 38 Year
  Sex: Male

DRUGS (3)
  1. NOVORAPID [Suspect]
     Active Substance: INSULIN ASPART
     Indication: TYPE 1 DIABETES MELLITUS
     Dosage: 84 IU, QD
     Route: 058
  2. THIAMAZOLE [Suspect]
     Active Substance: METHIMAZOLE
     Indication: THYROID HORMONES INCREASED
     Dosage: 5 MG, QD
     Route: 048
  3. INSULIN GLARGINE [Concomitant]
     Active Substance: INSULIN GLARGINE
     Indication: TYPE 1 DIABETES MELLITUS
     Dosage: 28 IU, QD
     Route: 058

REACTIONS (2)
  - Intestinal ischaemia [Fatal]
  - Diabetic ketoacidosis [Fatal]
